FAERS Safety Report 7015583-5 (Version None)
Quarter: 2010Q3

REPORT INFORMATION
  Report Type: 
  Country: None (occurrence: None)
  Receive Date: 20100927
  Receipt Date: 20100922
  Transmission Date: 20110219
  Serious: Yes (Other)
  Sender: FDA-Public Use
  Company Number: IT-BRISTOL-MYERS SQUIBB COMPANY-15302672

PATIENT
  Age: 78 Year
  Sex: Female

DRUGS (2)
  1. COUMADIN [Suspect]
     Indication: CARDIAC VALVE PROSTHESIS USER
     Dosage: THERAPY INTERRUPTED ON 15SEP2010 AND RESTARTED WITH REDUCED DOSAGE.
     Route: 048
     Dates: start: 19910318
  2. PANTECTA [Suspect]
     Dosage: PANTECTA 20MG GASTRORESISTANT ORAL TABS
     Route: 048
     Dates: start: 20100815

REACTIONS (2)
  - GASTRITIS [None]
  - INTERNATIONAL NORMALISED RATIO INCREASED [None]
